FAERS Safety Report 24110781 (Version 1)
Quarter: 2024Q3

REPORT INFORMATION
  Report Type: Spontaneous
  Country: US (occurrence: None)
  Receive Date: 20240717
  Receipt Date: 20240717
  Transmission Date: 20241017
  Serious: Yes (Other)
  Sender: Public
  Company Number: None

PATIENT
  Age: 30 Year
  Sex: Male
  Weight: 63.8 kg

DRUGS (12)
  1. OCRELIZUMAB [Suspect]
     Active Substance: OCRELIZUMAB
     Indication: Multiple sclerosis
     Dosage: 600 MG ONCE INTRAVENOUS
     Route: 042
     Dates: start: 20201101, end: 20240708
  2. DEPAKOTE ER [Concomitant]
     Active Substance: DIVALPROEX SODIUM
  3. Trileptel [Concomitant]
  4. PROVIGIL [Concomitant]
     Active Substance: MODAFINIL
  5. INDERAL LA [Concomitant]
     Active Substance: PROPRANOLOL HYDROCHLORIDE
  6. PROZAC [Concomitant]
     Active Substance: FLUOXETINE HYDROCHLORIDE
  7. Valtoco Spray [Concomitant]
  8. BACLOFEN [Concomitant]
     Active Substance: BACLOFEN
  9. OXYBUTYNIN [Concomitant]
     Active Substance: OXYBUTYNIN\OXYBUTYNIN CHLORIDE
  10. AMANTADINE [Concomitant]
     Active Substance: AMANTADINE
  11. VITAMIN D [Concomitant]
     Active Substance: VITAMIN D NOS
  12. FOLIC ACID [Concomitant]
     Active Substance: FOLIC ACID

REACTIONS (2)
  - Seizure [None]
  - Drug screen positive [None]

NARRATIVE: CASE EVENT DATE: 20240708
